FAERS Safety Report 25620494 (Version 1)
Quarter: 2025Q3

REPORT INFORMATION
  Report Type: Spontaneous
  Country: EU (occurrence: EU)
  Receive Date: 20250730
  Receipt Date: 20250730
  Transmission Date: 20251021
  Serious: Yes (Death, Life-Threatening, Other)
  Sender: HIKMA
  Company Number: EU-MLMSERVICE-20250711-PI577035-00270-1

PATIENT
  Age: 53 Year
  Sex: Male

DRUGS (3)
  1. METHANDROSTENOLONE [Suspect]
     Active Substance: METHANDROSTENOLONE
     Indication: Product used for unknown indication
     Route: 065
  2. METHYLPREDNISOLONE [Suspect]
     Active Substance: METHYLPREDNISOLONE
     Indication: Product used for unknown indication
     Route: 065
  3. SIBUTRAMINE [Suspect]
     Active Substance: SIBUTRAMINE
     Indication: Product used for unknown indication
     Route: 065

REACTIONS (5)
  - Drug abuse [Fatal]
  - Toxicity to various agents [Fatal]
  - Cerebral haemorrhage [Fatal]
  - Cerebral arteriovenous malformation haemorrhagic [Fatal]
  - Hypertension [Fatal]
